FAERS Safety Report 23868213 (Version 1)
Quarter: 2024Q2

REPORT INFORMATION
  Report Type: Spontaneous
  Country: US (occurrence: None)
  Receive Date: 20240516
  Receipt Date: 20240516
  Transmission Date: 20240716
  Serious: No
  Sender: FDA-Public Use
  Company Number: None

PATIENT
  Age: 72 Year
  Sex: Female
  Weight: 59.85 kg

DRUGS (8)
  1. LINZESS [Suspect]
     Active Substance: LINACLOTIDE
     Indication: Irritable bowel syndrome
     Dosage: 1 TABLET DAILY ORAL
     Route: 048
     Dates: start: 20211027, end: 20230201
  2. DEVICE [Concomitant]
     Active Substance: DEVICE
  3. AlgaeCal [Concomitant]
  4. STRONTIUM [Concomitant]
  5. Vitamin D+K [Concomitant]
  6. OMEGA 3 [Concomitant]
     Active Substance: CAPSAICIN
  7. IBS CLEAR [Concomitant]
  8. PRESERVISION [Concomitant]

REACTIONS (2)
  - Pruritus [None]
  - Pruritus [None]

NARRATIVE: CASE EVENT DATE: 20211101
